APPROVED DRUG PRODUCT: HALOPERIDOL DECANOATE
Active Ingredient: HALOPERIDOL DECANOATE
Strength: EQ 100MG BASE/ML
Dosage Form/Route: INJECTABLE;INJECTION
Application: A219168 | Product #002 | TE Code: AO
Applicant: CAPLIN STERILES LTD
Approved: May 13, 2025 | RLD: No | RS: No | Type: RX